FAERS Safety Report 7167023-3 (Version None)
Quarter: 2010Q4

REPORT INFORMATION
  Report Type: 
  Country: None (occurrence: None)
  Receive Date: 20101216
  Receipt Date: 20101213
  Transmission Date: 20110411
  Serious: Yes (Life-Threatening)
  Sender: FDA-Public Use
  Company Number: B0435583A

PATIENT
  Age: 47 Year
  Sex: Male

DRUGS (7)
  1. CLAMOXYL [Suspect]
     Indication: TOOTH EXTRACTION
     Dosage: 1G SINGLE DOSE
     Route: 048
     Dates: start: 20060101, end: 20060101
  2. MEDIATENSYL [Concomitant]
     Route: 048
  3. LOXEN [Concomitant]
     Route: 048
  4. LANZOR [Concomitant]
     Route: 048
  5. VALSARTAN  AND HYDROCHLOROTHIAZIDE [Concomitant]
     Route: 048
  6. PLAVIX [Concomitant]
     Route: 048
  7. VASTEN [Concomitant]
     Route: 065

REACTIONS (10)
  - ANAPHYLACTIC REACTION [None]
  - DRUG HYPERSENSITIVITY [None]
  - FACE OEDEMA [None]
  - HEADACHE [None]
  - HYPOTENSION [None]
  - MALAISE [None]
  - PRURITUS [None]
  - RASH GENERALISED [None]
  - RESPIRATORY DISORDER [None]
  - SKIN TEST POSITIVE [None]
